FAERS Safety Report 10423423 (Version 1)
Quarter: 2014Q3

REPORT INFORMATION
  Report Type: Spontaneous
  Country: BR (occurrence: BR)
  Receive Date: 20140902
  Receipt Date: 20140902
  Transmission Date: 20150326
  Serious: Yes (Other)
  Sender: FDA-Public Use
  Company Number: BR-VERTEX PHARMACEUTICALS INC-2014-003720

PATIENT
  Age: 46 Year
  Sex: Female

DRUGS (4)
  1. INCIVO [Suspect]
     Active Substance: TELAPREVIR
     Indication: CHRONIC HEPATITIS C
     Route: 065
     Dates: start: 20140502, end: 20140724
  2. VENLAFAXINE [Concomitant]
     Active Substance: VENLAFAXINE HYDROCHLORIDE
     Indication: DEPRESSION
     Route: 065
  3. RIBAVIRIN. [Concomitant]
     Active Substance: RIBAVIRIN
     Indication: CHRONIC HEPATITIS C
     Route: 065
     Dates: start: 20140404, end: 20140821
  4. PEGINTERFERON ALPHA 2-B [Concomitant]
     Indication: CHRONIC HEPATITIS C
     Route: 065
     Dates: start: 20140404, end: 20140821

REACTIONS (9)
  - Anaemia [Unknown]
  - Rash [Recovered/Resolved]
  - Malaise [Unknown]
  - Asthenia [Unknown]
  - Thrombocytopenia [Unknown]
  - Leukopenia [Unknown]
  - Pallor [Unknown]
  - Anorectal discomfort [Unknown]
  - Pruritus [Recovering/Resolving]

NARRATIVE: CASE EVENT DATE: 20140509
